FAERS Safety Report 8271203-3 (Version None)
Quarter: 2012Q2

REPORT INFORMATION
  Report Type: 
  Country: None (occurrence: None)
  Receive Date: 20120406
  Receipt Date: 20120326
  Transmission Date: 20120825
  Serious: Yes (Other)
  Sender: FDA-Public Use
  Company Number: 2012P1011290

PATIENT
  Age: 12 Year
  Sex: Female

DRUGS (1)
  1. ADENOSINE [Suspect]
     Indication: SUPRAVENTRICULAR TACHYCARDIA
     Dosage: 150 MCG/KG;X1;IART
     Route: 013

REACTIONS (6)
  - VISION BLURRED [None]
  - ACCIDENTAL EXPOSURE [None]
  - DIZZINESS [None]
  - PAIN [None]
  - LIVEDO RETICULARIS [None]
  - NAUSEA [None]
